FAERS Safety Report 4310438-9 (Version None)
Quarter: 2004Q1

REPORT INFORMATION
  Report Type: 
  Country: None (occurrence: None)
  Receive Date: 20040303
  Receipt Date: 20040223
  Transmission Date: 20041129
  Serious: Yes (Other)
  Sender: FDA-Public Use
  Company Number: PHFR2004GB01150

PATIENT
  Age: 70 Year
  Sex: Female
  Weight: 94 kg

DRUGS (5)
  1. VALSARTAN [Suspect]
     Indication: HYPERTENSION
     Dosage: 40MG/DAY
     Route: 048
     Dates: start: 20040126, end: 20040127
  2. ASPIRIN [Concomitant]
     Indication: HYPERTENSION
     Dosage: 75MG/DAY
     Route: 048
     Dates: start: 20030925
  3. ATENOLOL [Concomitant]
     Indication: HYPERTENSION
     Dosage: 50MG/DAY
     Route: 048
     Dates: start: 20030925
  4. SIMVASTATIN [Concomitant]
     Indication: HYPERTENSION
     Dosage: 20MG/DAY
     Route: 048
     Dates: start: 20030925
  5. RAMIPRIL [Concomitant]
     Indication: HYPERTENSION
     Route: 048
     Dates: start: 20030925

REACTIONS (1)
  - HALLUCINATION, VISUAL [None]
